FAERS Safety Report 4868019-4 (Version None)
Quarter: 2005Q4

REPORT INFORMATION
  Report Type: 
  Country: None (occurrence: None)
  Receive Date: 20051229
  Receipt Date: 20050818
  Transmission Date: 20060501
  Serious: Yes (Other)
  Sender: FDA-Public Use
  Company Number: JP-BOEHRINGER INGELHEIM PHARMACEUTICALS, INC.-2005-BP-15278NB

PATIENT
  Sex: Male

DRUGS (9)
  1. VIRAMUNE [Suspect]
     Indication: HIV INFECTION
     Route: 048
     Dates: start: 20041011
  2. EPIVIR [Suspect]
     Indication: HIV INFECTION
     Route: 048
     Dates: start: 20040917
  3. ZERIT [Suspect]
     Indication: HIV INFECTION
     Route: 048
     Dates: start: 20041126
  4. NORVIR [Suspect]
     Indication: HIV INFECTION
     Route: 048
     Dates: start: 20040917, end: 20040927
  5. STOCRIN [Suspect]
     Indication: HIV INFECTION
     Route: 048
     Dates: start: 20041005, end: 20041010
  6. REYATAZ [Suspect]
     Indication: HIV INFECTION
     Route: 048
     Dates: start: 20040917, end: 20040927
  7. VIREAD [Suspect]
     Indication: HIV INFECTION
     Route: 048
     Dates: start: 20040917, end: 20041123
  8. MYCOSYST [Suspect]
     Indication: MENINGITIS CRYPTOCOCCAL
     Route: 048
     Dates: start: 20040716, end: 20041106
  9. DENOSINE [Suspect]
     Indication: PROPHYLAXIS
     Route: 048
     Dates: start: 20041011, end: 20041106

REACTIONS (2)
  - KAPOSI'S SARCOMA [None]
  - THROMBOCYTOPENIA [None]
